FAERS Safety Report 4440191-X (Version None)
Quarter: 2004Q3

REPORT INFORMATION
  Report Type: 
  Country: None (occurrence: None)
  Receive Date: 20040903
  Receipt Date: 20040826
  Transmission Date: 20050211
  Serious: Yes (Hospitalization)
  Sender: FDA-Public Use
  Company Number: FR-ROCHE-378555

PATIENT
  Age: 49 Year
  Sex: Female

DRUGS (5)
  1. KYTRIL [Suspect]
     Indication: DRUG USE FOR UNKNOWN INDICATION
     Route: 042
     Dates: start: 20040421, end: 20040421
  2. PACLITAXEL [Suspect]
     Indication: DRUG USE FOR UNKNOWN INDICATION
     Route: 042
     Dates: start: 20040421, end: 20040421
  3. CARBOPLATINE [Suspect]
     Indication: DRUG USE FOR UNKNOWN INDICATION
     Route: 042
     Dates: start: 20040421, end: 20040421
  4. METHYLPREDNISOLONE [Suspect]
     Indication: DRUG USE FOR UNKNOWN INDICATION
     Dosage: ^A DOSE OF 1^
     Route: 042
     Dates: start: 20040421, end: 20040421
  5. POLARAMINE [Suspect]
     Indication: DRUG USE FOR UNKNOWN INDICATION
     Dosage: ^A DOSE OF 5^
     Route: 042
     Dates: start: 20040421, end: 20040421

REACTIONS (1)
  - INTESTINAL OBSTRUCTION [None]
